FAERS Safety Report 8101754-3 (Version None)
Quarter: 2012Q1

REPORT INFORMATION
  Report Type: 
  Country: None (occurrence: None)
  Receive Date: 20120131
  Receipt Date: 20120118
  Transmission Date: 20120608
  Serious: Yes (Other)
  Sender: FDA-Public Use
  Company Number: PHFR2012GB000762

PATIENT
  Sex: Female

DRUGS (1)
  1. GLEEVEC [Suspect]
     Indication: CHRONIC MYELOID LEUKAEMIA

REACTIONS (18)
  - LOWER RESPIRATORY TRACT INFECTION [None]
  - SCLERAL HAEMORRHAGE [None]
  - GAIT DISTURBANCE [None]
  - EYE HAEMORRHAGE [None]
  - DYSLEXIA [None]
  - DYSPNOEA [None]
  - ECZEMA [None]
  - DYSGRAPHIA [None]
  - EPISTAXIS [None]
  - CHEST DISCOMFORT [None]
  - HEAD DISCOMFORT [None]
  - THROMBOSIS [None]
  - HYPERHIDROSIS [None]
  - RETINAL HAEMORRHAGE [None]
  - INCREASED UPPER AIRWAY SECRETION [None]
  - ABNORMAL SENSATION IN EYE [None]
  - AMNESIA [None]
  - BALANCE DISORDER [None]
